FAERS Safety Report 7692839-4 (Version None)
Quarter: 2011Q3

REPORT INFORMATION
  Report Type: 
  Country: None (occurrence: None)
  Receive Date: 20110815
  Receipt Date: 20110810
  Transmission Date: 20111222
  Serious: Yes (Life-Threatening, Disabling)
  Sender: FDA-Public Use
  Company Number: OSCN-NO-1107L-0164

PATIENT
  Age: 58 Year
  Sex: Male
  Weight: 74.3 kg

DRUGS (2)
  1. OMNISCAN [Suspect]
     Indication: CEREBROVASCULAR ACCIDENT
     Dosage: NR, SINGLE DOSE,
  2. ERYTHROPOIETIN (ERYTHROPOIETIN) [Concomitant]

REACTIONS (7)
  - REFUSAL OF TREATMENT BY PATIENT [None]
  - PERITONEAL DIALYSIS [None]
  - VIITH NERVE PARALYSIS [None]
  - BLOOD SODIUM DECREASED [None]
  - NEPHROGENIC SYSTEMIC FIBROSIS [None]
  - CARBON DIOXIDE DECREASED [None]
  - METABOLIC ACIDOSIS [None]
